FAERS Safety Report 9210234 (Version 1)
Quarter: 2013Q2

REPORT INFORMATION
  Report Type: Spontaneous
  Country: GB (occurrence: GB)
  Receive Date: 20130404
  Receipt Date: 20130404
  Transmission Date: 20140414
  Serious: Yes (Life-Threatening)
  Sender: FDA-Public Use
  Company Number: GB-UCBSA-081918

PATIENT
  Age: 63 Year
  Sex: Female
  Weight: 78 kg

DRUGS (9)
  1. CIMZIA [Suspect]
     Indication: RHEUMATOID ARTHRITIS
     Dosage: 200 MG
     Route: 058
     Dates: start: 20120719, end: 20130301
  2. AMLODIPINE [Concomitant]
  3. BENDROFLUMETHIAZIDE [Concomitant]
  4. CALCEOS [Concomitant]
  5. DICLOFENAC [Concomitant]
  6. FOLIC ACID [Concomitant]
  7. LEFLUNOMIDE [Concomitant]
  8. METHOTREXATE [Concomitant]
  9. RAMIPRIL [Concomitant]

REACTIONS (1)
  - Small intestine carcinoma [Unknown]
